FAERS Safety Report 6999978-1 (Version None)
Quarter: 2010Q3

REPORT INFORMATION
  Report Type: 
  Country: None (occurrence: None)
  Receive Date: 20100920
  Receipt Date: 20100602
  Transmission Date: 20110219
  Serious: Yes (Hospitalization)
  Sender: FDA-Public Use
  Company Number: US-ASTRAZENECA-2006UW07068

PATIENT
  Age: 15581 Day
  Sex: Male
  Weight: 133.8 kg

DRUGS (13)
  1. SEROQUEL [Suspect]
     Indication: MENTAL DISORDER
     Route: 048
     Dates: start: 20020601, end: 20060401
  2. SEROQUEL [Suspect]
     Indication: IMPULSE-CONTROL DISORDER
     Route: 048
     Dates: start: 20020601, end: 20060401
  3. SEROQUEL [Suspect]
     Indication: ANGER
     Route: 048
     Dates: start: 20020601, end: 20060401
  4. SEROQUEL [Suspect]
     Dosage: 25-600 MG
     Route: 048
     Dates: start: 20020115
  5. SEROQUEL [Suspect]
     Dosage: 25-600 MG
     Route: 048
     Dates: start: 20020115
  6. SEROQUEL [Suspect]
     Dosage: 25-600 MG
     Route: 048
     Dates: start: 20020115
  7. GEODON [Concomitant]
     Dates: start: 20060501
  8. WELLBUTRIN SR [Concomitant]
     Dosage: 150 MG TO 300 MG
     Dates: start: 20000101
  9. WELLBUTRIN SR [Concomitant]
     Route: 048
     Dates: start: 20000706
  10. BUSPAR [Concomitant]
     Indication: ANXIETY
     Dosage: 10-60 MG
     Route: 048
     Dates: start: 19970914
  11. BUSPAR [Concomitant]
     Indication: AGITATION
     Dosage: 10-60 MG
     Route: 048
     Dates: start: 19970914
  12. KLONOPIN [Concomitant]
     Dates: start: 20000707
  13. NEXIUM [Concomitant]
     Indication: GASTROOESOPHAGEAL REFLUX DISEASE
     Dates: start: 20010101

REACTIONS (3)
  - HYPERLIPIDAEMIA [None]
  - HYPONATRAEMIA [None]
  - TYPE 2 DIABETES MELLITUS [None]
